FAERS Safety Report 4630377-3 (Version None)
Quarter: 2005Q2

REPORT INFORMATION
  Report Type: 
  Country: None (occurrence: None)
  Receive Date: 20050406
  Receipt Date: 20050301
  Transmission Date: 20051028
  Serious: Yes (Life-Threatening)
  Sender: FDA-Public Use
  Company Number: 213515

PATIENT
  Age: 71 Year
  Sex: Female

DRUGS (2)
  1. BEVACIZUMAB (BEVACIZUMAB) PWDR + SOLVENT,INFUSION SOLN, 100MG [Suspect]
     Indication: EPITHELIOID SARCOMA METASTATIC
     Dosage: 15 MG/KG, Q3W, INTRAVENOUS
     Route: 042
     Dates: start: 20030717, end: 20031120
  2. DOXORUBICIN HCL [Suspect]
     Indication: EPITHELIOID SARCOMA METASTATIC
     Dosage: 75 MG/M2, Q3W, INTRAVENOUS
     Route: 042
     Dates: start: 20030717, end: 20031120

REACTIONS (2)
  - LEUKOPENIA [None]
  - NEUTROPENIA [None]
